FAERS Safety Report 19196419 (Version 2)
Quarter: 2022Q2

REPORT INFORMATION
  Report Type: Report from Study
  Country: DE (occurrence: None)
  Receive Date: 20210429
  Receipt Date: 20220615
  Transmission Date: 20220721
  Serious: Yes (Life-Threatening, Hospitalization, Disabling)
  Sender: FDA-Public Use
  Company Number: DE-ROCHE-2282189

PATIENT
  Age: 45 Year
  Sex: Female
  Weight: 80 kg

DRUGS (25)
  1. PLACEBO [Suspect]
     Active Substance: UNSPECIFIED INGREDIENT
     Indication: Neuromyelitis optica spectrum disorder
     Route: 058
     Dates: start: 20150113, end: 20150408
  2. SATRALIZUMAB [Suspect]
     Active Substance: SATRALIZUMAB
     Indication: Neuromyelitis optica spectrum disorder
     Route: 058
     Dates: start: 20150623, end: 20150818
  3. MYCOPHENOLATE MOFETIL [Suspect]
     Active Substance: MYCOPHENOLATE MOFETIL
     Indication: Neuromyelitis optica spectrum disorder
     Route: 065
     Dates: start: 201405
  4. BACLOFEN [Suspect]
     Active Substance: BACLOFEN
     Indication: Neuromyelitis optica spectrum disorder
     Dosage: 15-15-15 MG
     Route: 048
  5. BACLOFEN [Suspect]
     Active Substance: BACLOFEN
     Dosage: DOSAGE IS UNCERATIN
     Route: 048
     Dates: start: 20150525
  6. BACLOFEN [Suspect]
     Active Substance: BACLOFEN
     Dosage: DOSAGE IS UNCERTAIN
     Route: 048
     Dates: start: 20150527, end: 20151005
  7. LEVOTHYROXINE SODIUM [Suspect]
     Active Substance: LEVOTHYROXINE SODIUM
     Indication: Neuromyelitis optica spectrum disorder
     Dosage: 75-0-0 MCG
     Route: 048
  8. AZATHIOPRINE [Suspect]
     Active Substance: AZATHIOPRINE
     Indication: Neuromyelitis optica spectrum disorder
     Route: 048
     Dates: start: 2007, end: 2007
  9. AZATHIOPRINE [Suspect]
     Active Substance: AZATHIOPRINE
     Route: 048
     Dates: start: 201311, end: 201312
  10. TIZANIDINE [Concomitant]
     Active Substance: TIZANIDINE
     Indication: Neuromyelitis optica spectrum disorder
     Dosage: 4-0-4 MG
  11. PREGABALIN [Concomitant]
     Active Substance: PREGABALIN
     Indication: Neuromyelitis optica spectrum disorder
     Dosage: 0-0-150 MG
  12. MIRTAZAPINE [Concomitant]
     Active Substance: MIRTAZAPINE
     Indication: Neuromyelitis optica spectrum disorder
     Dosage: 0-0-60 MG
  13. SIMVASTATIN [Concomitant]
     Active Substance: SIMVASTATIN
     Indication: Neuromyelitis optica spectrum disorder
     Dosage: 0-0-40 MG
     Dates: start: 20150624, end: 20150717
  14. METAMIZOLE [Concomitant]
     Active Substance: METAMIZOLE
     Indication: Neuromyelitis optica spectrum disorder
     Dosage: 500
     Dates: start: 20150518, end: 20150624
  15. CYCLOPHOSPHAMIDE [Concomitant]
     Active Substance: CYCLOPHOSPHAMIDE
  16. METHOTREXATE [Concomitant]
     Active Substance: METHOTREXATE
  17. PREDNISOLONE [Concomitant]
     Active Substance: PREDNISOLONE
  18. IBUPROFEN [Concomitant]
     Active Substance: IBUPROFEN
  19. CYANOCOBALAMIN [Concomitant]
     Active Substance: CYANOCOBALAMIN
  20. ENOXAPARIN SODIUM [Concomitant]
     Active Substance: ENOXAPARIN SODIUM
  21. DOXEPIN [Concomitant]
     Active Substance: DOXEPIN
  22. PANTOPRAZOLE SODIUM [Concomitant]
     Active Substance: PANTOPRAZOLE SODIUM
  23. DAPTOMYCIN [Concomitant]
     Active Substance: DAPTOMYCIN
     Indication: Neuromyelitis optica spectrum disorder
     Dosage: DOSAGE IS UNCERTAIN.
     Route: 042
     Dates: start: 20151015, end: 20151018
  24. DRONABINOL [Concomitant]
     Active Substance: DRONABINOL
     Indication: Neuromyelitis optica spectrum disorder
     Dosage: DOSAGE IS UNCERTAIN.
     Route: 048
     Dates: start: 20150523
  25. FLUCLOXACILLIN SODIUM [Concomitant]
     Active Substance: FLUCLOXACILLIN SODIUM
     Indication: Neuromyelitis optica spectrum disorder
     Dosage: DOSAGE IS UNCERTAIN.
     Route: 042
     Dates: start: 20151019, end: 20151027

REACTIONS (1)
  - Septic endocarditis [Recovered/Resolved with Sequelae]

NARRATIVE: CASE EVENT DATE: 20151025
